FAERS Safety Report 18242090 (Version 1)
Quarter: 2020Q3

REPORT INFORMATION
  Report Type: Spontaneous
  Country: US (occurrence: US)
  Receive Date: 20200908
  Receipt Date: 20200908
  Transmission Date: 20201103
  Serious: No
  Sender: FDA-Public Use
  Company Number: None

PATIENT
  Age: 29 Year
  Sex: Female
  Weight: 67.5 kg

DRUGS (2)
  1. ETONOGESTREL/ETHINYL ESTRADIOL [Suspect]
     Active Substance: ETHINYL ESTRADIOL\ETONOGESTREL
     Indication: CONTRACEPTION
     Dosage: ?          QUANTITY:1 RING;OTHER FREQUENCY:1 EVERY 3 WEEKS;?
     Route: 067
  2. WOMEN^S DAILY MULTIVITAMIN [Concomitant]

REACTIONS (15)
  - Therapy cessation [None]
  - Paranoia [None]
  - Irritability [None]
  - Anxiety [None]
  - Depression [None]
  - Insomnia [None]
  - Product substitution issue [None]
  - Influenza [None]
  - Intrusive thoughts [None]
  - Mood swings [None]
  - Fatigue [None]
  - Panic attack [None]
  - Crying [None]
  - Loss of libido [None]
  - Feeling abnormal [None]

NARRATIVE: CASE EVENT DATE: 20200817
